FAERS Safety Report 7407636-4 (Version None)
Quarter: 2011Q2

REPORT INFORMATION
  Report Type: 
  Country: None (occurrence: None)
  Receive Date: 20110401
  Receipt Date: 20110321
  Transmission Date: 20111010
  Serious: Yes (Hospitalization, Other)
  Sender: FDA-Public Use
  Company Number: DSJ-2010-22174

PATIENT
  Age: 69 Year
  Sex: Male

DRUGS (4)
  1. OXCARBAZEPINE (OXCARBAZEPINE) (OXCARBAZEPINE) [Concomitant]
  2. ROSUVASTATIN [Concomitant]
  3. BENICAR [Suspect]
     Indication: HYPERTENSION
     Dosage: 20 MG (20 MG, 1 IN 1 D), PER ORAL
     Route: 048
     Dates: start: 20080101
  4. BENICAR [Suspect]
     Indication: HYPERTENSION
     Dosage: 20 MG (20 MG, 1 IN 1 D), PER ORAL
     Route: 048
     Dates: start: 20080101

REACTIONS (2)
  - FALL [None]
  - SYMPHYSIOLYSIS [None]
